FAERS Safety Report 6021475-0 (Version None)
Quarter: 2008Q4

REPORT INFORMATION
  Report Type: 
  Country: None (occurrence: None)
  Receive Date: 20081229
  Receipt Date: 20081217
  Transmission Date: 20090506
  Serious: Yes (Other)
  Sender: FDA-Public Use
  Company Number: EG-PFIZER INC-2008158711

PATIENT

DRUGS (2)
  1. VFEND [Suspect]
     Indication: FEBRILE NEUTROPENIA
     Route: 048
  2. CHEMOTHERAPY NOS [Concomitant]

REACTIONS (1)
  - RESPIRATORY FAILURE [None]
